FAERS Safety Report 5205076-X (Version None)
Quarter: 2007Q1

REPORT INFORMATION
  Report Type: 
  Country: None (occurrence: None)
  Receive Date: 20070109
  Receipt Date: 20070109
  Transmission Date: 20070707
  Serious: Yes (Hospitalization)
  Sender: FDA-Public Use
  Company Number: None

PATIENT
  Age: 59 Year
  Sex: Female
  Weight: 128.2 kg

DRUGS (8)
  1. PREGABALIN 75 MG PFIZER [Suspect]
     Indication: ABDOMINAL PAIN
     Dosage: 75 MG BID PO
     Route: 048
     Dates: start: 20061108, end: 20061128
  2. PLACEBO [Suspect]
  3. SYNTHROID [Concomitant]
  4. PREMARIN [Concomitant]
  5. EFFEXOR [Concomitant]
  6. ULTRAM [Concomitant]
  7. MOTRIN [Concomitant]
  8. ATIVAN [Concomitant]

REACTIONS (2)
  - ALCOHOL POISONING [None]
  - MULTIPLE DRUG OVERDOSE [None]
